FAERS Safety Report 14899594 (Version 1)
Quarter: 2018Q2

REPORT INFORMATION
  Report Type: Report from Study
  Country: US (occurrence: US)
  Receive Date: 20180516
  Receipt Date: 20180516
  Transmission Date: 20180711
  Serious: Yes (Other)
  Sender: FDA-Public Use
  Company Number: US-CIPLA LTD.-2018US16805

PATIENT

DRUGS (4)
  1. TOPOTECAN [Suspect]
     Active Substance: TOPOTECAN HYDROCHLORIDE
     Indication: SARCOMA
     Dosage: 3 MG/M2, PER DAY AS A 30-MIN INFUSION FOR 10 DAYS
     Route: 042
  2. G-CSF [Concomitant]
     Active Substance: GRANULOCYTE COLONY-STIMULATING FACTOR NOS
     Indication: PRODUCT USED FOR UNKNOWN INDICATION
     Dosage: 5 ?G/KG, PER DAY S.C. OR I.V. UNTIL ANC 43000 PER MM^3 ON 2 CONSECUTIVE DAYS
     Route: 065
  3. CYCLOPHOSPHAMIDE. [Suspect]
     Active Substance: CYCLOPHOSPHAMIDE
     Indication: SARCOMA
     Dosage: 1000 MG/M2, PER DAY, FOR 5 DAYS (TOTAL 5 G/M^2)
     Route: 042
  4. SODIUM CHLORIDE. [Concomitant]
     Active Substance: SODIUM CHLORIDE
     Indication: PROPHYLAXIS AGAINST DEHYDRATION
     Dosage: 125 ML/M2/H ON DAY 7 EVENING BEFORE THE FIRST DOSE OF CYCLOPHOSPHAMIDE
     Route: 042

REACTIONS (2)
  - Hepatotoxicity [Unknown]
  - Venoocclusive disease [Unknown]
